FAERS Safety Report 16458123 (Version 2)
Quarter: 2020Q1

REPORT INFORMATION
  Report Type: Spontaneous
  Country: US (occurrence: US)
  Receive Date: 20190620
  Receipt Date: 20200319
  Transmission Date: 20200409
  Serious: Yes (Hospitalization)
  Sender: FDA-Public Use
  Company Number: US-ROCHE-2340008

PATIENT
  Age: 32 Year
  Sex: Male
  Weight: 74.91 kg

DRUGS (3)
  1. PULMOZYME [Suspect]
     Active Substance: DORNASE ALFA
     Route: 045
     Dates: start: 19930301
  2. PULMOZYME [Suspect]
     Active Substance: DORNASE ALFA
     Indication: CYSTIC FIBROSIS
     Route: 050
     Dates: start: 20181206
  3. PULMOZYME [Suspect]
     Active Substance: DORNASE ALFA
     Dosage: FORM STRENGTH: 1 MG/ML
     Route: 055
     Dates: start: 200001

REACTIONS (1)
  - Cystic fibrosis [Unknown]

NARRATIVE: CASE EVENT DATE: 20190513
